FAERS Safety Report 8031038-3 (Version None)
Quarter: 2012Q1

REPORT INFORMATION
  Report Type: 
  Country: None (occurrence: None)
  Receive Date: 20120109
  Receipt Date: 20120105
  Transmission Date: 20120608
  Serious: No
  Sender: FDA-Public Use
  Company Number: US-PFIZER INC-2012003901

PATIENT
  Sex: Male
  Weight: 79.365 kg

DRUGS (1)
  1. IBUPROFEN (ADVIL) [Suspect]
     Indication: HEADACHE
     Dosage: UNK, 1X/DAY
     Route: 048
     Dates: start: 20120104, end: 20120105

REACTIONS (3)
  - MALAISE [None]
  - SEASONAL ALLERGY [None]
  - HYPERSENSITIVITY [None]
